FAERS Safety Report 25248864 (Version 1)
Quarter: 2025Q2

REPORT INFORMATION
  Report Type: Spontaneous
  Country: CN (occurrence: CN)
  Receive Date: 20250429
  Receipt Date: 20250429
  Transmission Date: 20250716
  Serious: Yes (Hospitalization, Other)
  Sender: BEIGENE
  Company Number: CN-BEIGENE-BGN-2025-006556

PATIENT
  Age: 72 Year
  Weight: 65 kg

DRUGS (26)
  1. TISLELIZUMAB [Suspect]
     Active Substance: TISLELIZUMAB
     Indication: Lung adenocarcinoma
  2. TISLELIZUMAB [Suspect]
     Active Substance: TISLELIZUMAB
     Route: 041
  3. TISLELIZUMAB [Suspect]
     Active Substance: TISLELIZUMAB
     Route: 041
  4. TISLELIZUMAB [Suspect]
     Active Substance: TISLELIZUMAB
  5. TISLELIZUMAB [Suspect]
     Active Substance: TISLELIZUMAB
     Route: 041
  6. TISLELIZUMAB [Suspect]
     Active Substance: TISLELIZUMAB
     Route: 041
  7. TISLELIZUMAB [Suspect]
     Active Substance: TISLELIZUMAB
  8. TISLELIZUMAB [Suspect]
     Active Substance: TISLELIZUMAB
  9. TISLELIZUMAB [Suspect]
     Active Substance: TISLELIZUMAB
  10. TISLELIZUMAB [Suspect]
     Active Substance: TISLELIZUMAB
     Route: 041
  11. TISLELIZUMAB [Suspect]
     Active Substance: TISLELIZUMAB
  12. TISLELIZUMAB [Suspect]
     Active Substance: TISLELIZUMAB
     Route: 041
  13. CARBOPLATIN [Concomitant]
     Active Substance: CARBOPLATIN
     Indication: Lung adenocarcinoma
  14. CARBOPLATIN [Concomitant]
     Active Substance: CARBOPLATIN
     Route: 041
  15. CARBOPLATIN [Concomitant]
     Active Substance: CARBOPLATIN
     Dosage: 0.4 GRAM, Q3WK, D1
     Route: 041
  16. CARBOPLATIN [Concomitant]
     Active Substance: CARBOPLATIN
     Dosage: 0.4 GRAM, Q3WK, D1
  17. CARBOPLATIN [Concomitant]
     Active Substance: CARBOPLATIN
     Route: 041
  18. CARBOPLATIN [Concomitant]
     Active Substance: CARBOPLATIN
  19. PEMETREXED DISODIUM [Concomitant]
     Active Substance: PEMETREXED DISODIUM
     Indication: Lung adenocarcinoma
     Route: 041
  20. PEMETREXED DISODIUM [Concomitant]
     Active Substance: PEMETREXED DISODIUM
  21. PEMETREXED DISODIUM [Concomitant]
     Active Substance: PEMETREXED DISODIUM
     Dosage: 300 MILLIGRAM, Q3WK, D1
     Route: 041
  22. PEMETREXED DISODIUM [Concomitant]
     Active Substance: PEMETREXED DISODIUM
     Dosage: 300 MILLIGRAM, Q3WK, D1
  23. PEMETREXED DISODIUM [Concomitant]
     Active Substance: PEMETREXED DISODIUM
     Dosage: 500 MILLIGRAM, Q3WK, D1
  24. PEMETREXED DISODIUM [Concomitant]
     Active Substance: PEMETREXED DISODIUM
     Dosage: 500 MILLIGRAM, Q3WK, D1
     Route: 041
  25. PEMETREXED DISODIUM [Concomitant]
     Active Substance: PEMETREXED DISODIUM
  26. PEMETREXED DISODIUM [Concomitant]
     Active Substance: PEMETREXED DISODIUM
     Route: 041

REACTIONS (2)
  - Eczema [Unknown]
  - Metastases to pleura [Unknown]
